FAERS Safety Report 25748254 (Version 1)
Quarter: 2025Q3

REPORT INFORMATION
  Report Type: Spontaneous
  Country: CN (occurrence: CN)
  Receive Date: 20250902
  Receipt Date: 20250902
  Transmission Date: 20251021
  Serious: Yes (Hospitalization)
  Sender: Haleon PLC
  Company Number: CN-HALEON-2260472

PATIENT
  Age: 28 Year
  Sex: Male
  Weight: 70 kg

DRUGS (2)
  1. DEXTROMETHORPHAN HYDROBROMIDE\GUAIFENESIN [Suspect]
     Active Substance: DEXTROMETHORPHAN HYDROBROMIDE\GUAIFENESIN
     Indication: Antitussive therapy
     Route: 048
     Dates: start: 20250824, end: 20250824
  2. PREGABALIN [Suspect]
     Active Substance: PREGABALIN
     Indication: Analgesic therapy
     Route: 048
     Dates: start: 20250824, end: 20250824

REACTIONS (2)
  - Seizure [Recovering/Resolving]
  - Depressed level of consciousness [Recovering/Resolving]

NARRATIVE: CASE EVENT DATE: 20250824
